FAERS Safety Report 8078867-8 (Version None)
Quarter: 2012Q1

REPORT INFORMATION
  Report Type: 
  Country: None (occurrence: None)
  Receive Date: 20120127
  Receipt Date: 20110222
  Transmission Date: 20120608
  Serious: No
  Sender: FDA-Public Use
  Company Number: US-ABBOTT-11P-163-0707652-00

PATIENT
  Sex: Male
  Weight: 86.26 kg

DRUGS (12)
  1. SULINDAC [Concomitant]
     Indication: ARTHRALGIA
  2. SIMVASTATIN [Concomitant]
     Indication: CARDIAC DISORDER
  3. IRON [Concomitant]
     Indication: MINERAL SUPPLEMENTATION
  4. ATENOLOL [Concomitant]
     Indication: HYPERTENSION
  5. HUMIRA [Suspect]
     Indication: CROHN'S DISEASE
     Dates: start: 20080101
  6. FOSINOPRIL SODIUM [Concomitant]
     Indication: HYPERTENSION
  7. MULTI-VITAMINS [Concomitant]
     Indication: VITAMIN SUPPLEMENTATION
  8. ASACOL [Concomitant]
     Indication: CROHN'S DISEASE
  9. ASCORBIC ACID [Concomitant]
     Indication: VITAMIN SUPPLEMENTATION
  10. FISH OIL [Concomitant]
     Indication: MINERAL SUPPLEMENTATION
  11. CALCIUM PLUS D3 [Concomitant]
     Indication: MINERAL SUPPLEMENTATION
  12. VITAMIN B-12 [Concomitant]
     Indication: VITAMIN B12 DEFICIENCY

REACTIONS (2)
  - DEVICE MALFUNCTION [None]
  - INJECTION SITE HAEMORRHAGE [None]
